FAERS Safety Report 12764599 (Version 2)
Quarter: 2016Q4

REPORT INFORMATION
  Report Type: Report from Study
  Country: BE (occurrence: BE)
  Receive Date: 20160920
  Receipt Date: 20161005
  Transmission Date: 20170207
  Serious: Yes (Congenital Anomaly)
  Sender: FDA-Public Use
  Company Number: BE-TAKEDA-2016TUS016572

PATIENT
  Sex: Female

DRUGS (5)
  1. PENTASA [Concomitant]
     Active Substance: MESALAMINE
     Indication: COLITIS ULCERATIVE
     Dosage: UNK
     Route: 048
  2. FOLIC ACID. [Concomitant]
     Active Substance: FOLIC ACID
     Indication: PREGNANCY
     Dosage: UNK
     Route: 064
  3. VEDOLIZUMAB [Suspect]
     Active Substance: VEDOLIZUMAB
     Indication: COLITIS ULCERATIVE
     Dosage: 300 MG, UNK
     Route: 064
     Dates: start: 20120814, end: 20160525
  4. PENTASA [Concomitant]
     Active Substance: MESALAMINE
     Dosage: 2 G, UNK
     Route: 048
  5. OMNIBIONTA                         /07412901/ [Concomitant]
     Indication: PREGNANCY
     Dosage: UNK
     Route: 064

REACTIONS (2)
  - Pulmonary valve stenosis congenital [Unknown]
  - Right ventricular systolic pressure increased [Unknown]

NARRATIVE: CASE EVENT DATE: 20160906
